FAERS Safety Report 17165783 (Version 4)
Quarter: 2020Q1

REPORT INFORMATION
  Report Type: Spontaneous
  Country: US (occurrence: US)
  Receive Date: 20191217
  Receipt Date: 20200121
  Transmission Date: 20200409
  Serious: Yes (Other)
  Sender: FDA-Public Use
  Company Number: US-PFIZER INC-2019537281

PATIENT
  Age: 85 Year
  Sex: Female
  Weight: 68.4 kg

DRUGS (2)
  1. LATANOPROST. [Suspect]
     Active Substance: LATANOPROST
     Dosage: 2 GTT, 1X/DAY (ONE DROP IN EACH EYE ONCE A DAY)
     Route: 047
  2. LATANOPROST. [Suspect]
     Active Substance: LATANOPROST
     Indication: GLAUCOMA
     Dosage: 4 GTT, 1X/DAY (USUALLY GOT 2 DROPS INSTEAD ONE)
     Route: 047

REACTIONS (3)
  - Product packaging issue [Unknown]
  - Extra dose administered [Unknown]
  - Blindness [Unknown]
